FAERS Safety Report 10571335 (Version 3)
Quarter: 2015Q1

REPORT INFORMATION
  Report Type: Spontaneous
  Country: US (occurrence: US)
  Receive Date: 20141107
  Receipt Date: 20150126
  Transmission Date: 20150720
  Serious: Yes (Other)
  Sender: FDA-Public Use
  Company Number: US-BAYER-2014-162700

PATIENT
  Age: 38 Year
  Sex: Female

DRUGS (1)
  1. MIRENA [Suspect]
     Active Substance: LEVONORGESTREL
     Indication: CONTRACEPTION
     Dosage: 20 MCG/24HR, CONT
     Route: 015
     Dates: start: 200909, end: 20141002

REACTIONS (5)
  - Genital haemorrhage [Recovered/Resolved]
  - Device difficult to use [None]
  - Post procedural haemorrhage [None]
  - Abdominal pain lower [None]
  - Embedded device [None]

NARRATIVE: CASE EVENT DATE: 20140924
